FAERS Safety Report 5423261-9 (Version None)
Quarter: 2007Q3

REPORT INFORMATION
  Report Type: 
  Country: None (occurrence: None)
  Receive Date: 20070730
  Receipt Date: 20070307
  Transmission Date: 20080115
  Serious: Yes (Hospitalization)
  Sender: FDA-Public Use
  Company Number: 200710363BWH

PATIENT
  Age: 71 Year
  Sex: Female

DRUGS (17)
  1. AVELOX [Suspect]
     Indication: BRONCHITIS
     Dosage: ORAL
     Route: 048
  2. LISINOPRIL [Concomitant]
  3. ETODOLAC [Concomitant]
  4. GEMFIBROZIL [Concomitant]
  5. VERAPAMIL [Concomitant]
  6. WELLBUTRIN [Concomitant]
  7. ZYPREXA [Concomitant]
  8. FUROSEMIDE [Concomitant]
  9. TOPAMAX [Concomitant]
  10. ARTANE [Concomitant]
  11. GLYBURIDE [Concomitant]
  12. BONIVA [Concomitant]
  13. OSCAL 500-D [CALCIUM, COLECALCIFEROL] [Concomitant]
  14. MUCINEX DM [Concomitant]
  15. TUSSIONEX [HYDROCODONE, PHENYLTOLOXAMINE] [Concomitant]
  16. TRAVATAB [Concomitant]
  17. ALBUTEROL [Concomitant]

REACTIONS (1)
  - SWOLLEN TONGUE [None]
